FAERS Safety Report 8093033-8 (Version None)
Quarter: 2012Q1

REPORT INFORMATION
  Report Type: 
  Country: None (occurrence: None)
  Receive Date: 20120128
  Receipt Date: 20111025
  Transmission Date: 20120608
  Serious: No
  Sender: FDA-Public Use
  Company Number: US-ABBOTT-10P-163-0661534-00

PATIENT
  Sex: Female

DRUGS (13)
  1. IMITREX [Concomitant]
     Indication: MIGRAINE
  2. IBUPROFEN [Concomitant]
     Indication: PAIN
  3. HUMIRA [Suspect]
     Indication: PSORIATIC ARTHROPATHY
     Route: 058
     Dates: start: 20080201
  4. HUMIRA [Suspect]
  5. BACTRIM [Suspect]
     Indication: STAPHYLOCOCCAL INFECTION
     Dates: start: 20100601
  6. HUMIRA [Suspect]
     Indication: PSORIASIS
  7. HUMIRA [Suspect]
  8. BENADRYL [Concomitant]
     Indication: PRURITUS
  9. IBUPROFEN [Concomitant]
     Indication: SWELLING
  10. PROZAC [Concomitant]
     Indication: PRODUCT USED FOR UNKNOWN INDICATION
  11. PROBIOTIC CULTUREL [Concomitant]
     Indication: COLITIS
  12. NADOLOL [Concomitant]
     Indication: MIGRAINE PROPHYLAXIS
  13. NADOLOL [Concomitant]
     Indication: HEADACHE

REACTIONS (26)
  - SKIN FISSURES [None]
  - RESPIRATORY TRACT INFECTION [None]
  - STAPHYLOCOCCAL INFECTION [None]
  - DRUG ADMINISTRATION ERROR [None]
  - SWELLING FACE [None]
  - FEELING HOT [None]
  - URTICARIA [None]
  - SKIN ODOUR ABNORMAL [None]
  - SKIN HAEMORRHAGE [None]
  - DIARRHOEA [None]
  - PSORIASIS [None]
  - INJECTION SITE PAIN [None]
  - JOINT SWELLING [None]
  - SKIN LESION [None]
  - MILIA [None]
  - PUSTULAR PSORIASIS [None]
  - PYREXIA [None]
  - CHILLS [None]
  - HYPERHIDROSIS [None]
  - DRUG HYPERSENSITIVITY [None]
  - ERYTHEMA [None]
  - INFECTION [None]
  - WOUND SECRETION [None]
  - DEVICE MALFUNCTION [None]
  - RASH PUSTULAR [None]
  - MENOPAUSAL SYMPTOMS [None]
